FAERS Safety Report 8633486 (Version 2)
Quarter: 2013Q2

REPORT INFORMATION
  Report Type: Spontaneous
  Country: US (occurrence: US)
  Receive Date: 20120625
  Receipt Date: 20130520
  Transmission Date: 20140414
  Serious: Yes (Other)
  Sender: FDA-Public Use
  Company Number: PHHY2012US053041

PATIENT
  Age: 23 Month
  Sex: Male

DRUGS (1)
  1. METHYLPHENIDATE [Suspect]

REACTIONS (13)
  - Torticollis [Recovered/Resolved]
  - Accidental exposure to product [Recovered/Resolved]
  - Psychomotor hyperactivity [Recovered/Resolved]
  - Dysarthria [Recovered/Resolved]
  - Dyskinesia [Recovered/Resolved]
  - Mydriasis [Recovered/Resolved]
  - Dermatillomania [Recovered/Resolved]
  - Abnormal behaviour [Recovered/Resolved]
  - Distractibility [Recovered/Resolved]
  - Grimacing [Recovered/Resolved]
  - Agitation [Recovered/Resolved]
  - Aggression [Recovered/Resolved]
  - Drug administered to patient of inappropriate age [Unknown]
